FAERS Safety Report 6524787-7 (Version None)
Quarter: 2010Q1

REPORT INFORMATION
  Report Type: 
  Country: None (occurrence: None)
  Receive Date: 20100104
  Receipt Date: 20091222
  Transmission Date: 20100710
  Serious: Yes (Hospitalization)
  Sender: FDA-Public Use
  Company Number: TR-ELI_LILLY_AND_COMPANY-TR200912005386

PATIENT
  Age: 49 Year
  Sex: Female

DRUGS (6)
  1. HUMALOG [Suspect]
     Indication: DIABETES MELLITUS
     Dosage: 6 IU, EACH MORNING
     Route: 058
     Dates: start: 20071222
  2. HUMALOG [Suspect]
     Dosage: 6 IU, DAILY (1/D)
     Route: 058
     Dates: start: 20071222
  3. HUMALOG [Suspect]
     Dosage: 6 IU, EACH EVENING
     Route: 058
     Dates: start: 20071222
  4. GLUKOFEN [Concomitant]
     Indication: DIABETES MELLITUS
     Dosage: UNK UNK, 2/D
     Route: 048
  5. LANTUS [Concomitant]
     Indication: DIABETES MELLITUS
     Route: 058
  6. VITAMINS [Concomitant]
     Dosage: UNK, 2/D

REACTIONS (2)
  - OEDEMA PERIPHERAL [None]
  - SKIN ULCER [None]
